FAERS Safety Report 8256986-0 (Version None)
Quarter: 2012Q1

REPORT INFORMATION
  Report Type: 
  Country: None (occurrence: None)
  Receive Date: 20120330
  Receipt Date: 20120319
  Transmission Date: 20120608
  Serious: Yes (Hospitalization)
  Sender: FDA-Public Use
  Company Number: JP-2012-14547

PATIENT
  Age: 64 Year
  Sex: Male

DRUGS (2)
  1. ASPIRIN (ACETYULSALICYLIC ACID) [Concomitant]
  2. PLETAL [Suspect]
     Indication: THROMBOTIC CEREBRAL INFARCTION
     Dosage: ORAL
     Route: 048

REACTIONS (7)
  - SWELLING [None]
  - MUSCLE HAEMORRHAGE [None]
  - ACTIVATED PARTIAL THROMBOPLASTIN TIME PROLONGED [None]
  - OEDEMA PERIPHERAL [None]
  - ANAEMIA [None]
  - HAEMATOMA [None]
  - ACQUIRED HAEMOPHILIA [None]
